FAERS Safety Report 21369092 (Version 1)
Quarter: 2022Q3

REPORT INFORMATION
  Report Type: Spontaneous
  Country: FR (occurrence: None)
  Receive Date: 20220923
  Receipt Date: 20220923
  Transmission Date: 20221027
  Serious: Yes (Other)
  Sender: FDA-Public Use
  Company Number: FR-Orion Corporation ORION PHARMA-TREX2022-0160

PATIENT
  Age: 59 Year
  Sex: Female

DRUGS (4)
  1. METHOTREXATE SODIUM [Suspect]
     Active Substance: METHOTREXATE SODIUM
     Indication: Sarcoidosis
     Dosage: STRENGTH: 10 MG
     Route: 048
     Dates: start: 20191022, end: 20220209
  2. METHOTREXATE SODIUM [Suspect]
     Active Substance: METHOTREXATE SODIUM
     Dosage: STRENGTH: 10 MG
     Route: 048
     Dates: start: 20220209
  3. PREDNISONE ZENTIVA [Concomitant]
     Indication: Sarcoidosis
     Dosage: STRENGTH: 1 MG
     Route: 048
  4. LEUCOVORIN CALCIUM [Concomitant]
     Active Substance: LEUCOVORIN CALCIUM
     Indication: Drug toxicity prophylaxis
     Dosage: STRENGTH: 25 MG
     Route: 048
     Dates: start: 20191022

REACTIONS (2)
  - Squamous cell carcinoma [Recovered/Resolved]
  - Product use in unapproved indication [Unknown]

NARRATIVE: CASE EVENT DATE: 20191022
